FAERS Safety Report 12539329 (Version 1)
Quarter: 2016Q3

REPORT INFORMATION
  Report Type: Spontaneous
  Country: US (occurrence: US)
  Receive Date: 20160708
  Receipt Date: 20160708
  Transmission Date: 20161109
  Serious: Yes (Other)
  Sender: FDA-Public Use
  Company Number: GXBR2016US002167

PATIENT
  Age: 72 Year
  Sex: Male

DRUGS (2)
  1. OMEPRAZOLE DELAYED RELEASE [Suspect]
     Active Substance: OMEPRAZOLE
     Indication: GASTROOESOPHAGEAL REFLUX DISEASE
     Dosage: 20 MG, QD
     Route: 048
     Dates: start: 1995, end: 201512
  2. PRILOSEC [Suspect]
     Active Substance: OMEPRAZOLE MAGNESIUM
     Indication: PRODUCT USED FOR UNKNOWN INDICATION
     Dosage: UNK DF, UNK
     Route: 065
     Dates: start: 1995

REACTIONS (19)
  - Furuncle [Recovered/Resolved]
  - Chronic kidney disease [Unknown]
  - Hypertension [Unknown]
  - Infection [Unknown]
  - Acute kidney injury [Unknown]
  - Urinary retention [Unknown]
  - Peripheral swelling [Not Recovered/Not Resolved]
  - Abdominal distension [Unknown]
  - Pruritus [Unknown]
  - Urinary incontinence [Unknown]
  - Malaise [Not Recovered/Not Resolved]
  - Hypoaesthesia [Not Recovered/Not Resolved]
  - Joint swelling [Unknown]
  - Limb discomfort [Not Recovered/Not Resolved]
  - Skin discolouration [Unknown]
  - Rash [Unknown]
  - Yellow skin [Not Recovered/Not Resolved]
  - Blister [Not Recovered/Not Resolved]
  - Pain [Unknown]

NARRATIVE: CASE EVENT DATE: 2002
